FAERS Safety Report 9931592 (Version 1)
Quarter: 2014Q1

REPORT INFORMATION
  Report Type: Report from Study
  Country: US (occurrence: US)
  Receive Date: 20140228
  Receipt Date: 20140228
  Transmission Date: 20141002
  Serious: Yes (Death)
  Sender: FDA-Public Use
  Company Number: US-ROCHE-1356709

PATIENT
  Age: 44 Year
  Sex: Male

DRUGS (1)
  1. XELODA [Suspect]
     Indication: OESOPHAGEAL ADENOCARCINOMA
     Dosage: 14 DAYS ON AND 7 DAYS OFF
     Route: 048
     Dates: start: 201311, end: 201401

REACTIONS (6)
  - Death [Fatal]
  - Malaise [Unknown]
  - Nausea [Unknown]
  - Dry mouth [Unknown]
  - Tongue dry [Unknown]
  - Paraesthesia [Unknown]
